FAERS Safety Report 8185810-X (Version None)
Quarter: 2012Q1

REPORT INFORMATION
  Report Type: 
  Country: None (occurrence: None)
  Receive Date: 20120305
  Receipt Date: 20120223
  Transmission Date: 20120608
  Serious: Yes (Other)
  Sender: FDA-Public Use
  Company Number: US-ASTRAZENECA-2012SE13213

PATIENT
  Age: 77 Year
  Sex: Female

DRUGS (3)
  1. ZETIA [Concomitant]
  2. FISH OIL [Concomitant]
  3. CRESTOR [Suspect]
     Route: 048

REACTIONS (1)
  - CONDUCTION DISORDER [None]
